FAERS Safety Report 7991123-9 (Version None)
Quarter: 2011Q4

REPORT INFORMATION
  Report Type: 
  Country: None (occurrence: None)
  Receive Date: 20111219
  Receipt Date: 20111214
  Transmission Date: 20120403
  Serious: Yes (Other)
  Sender: FDA-Public Use
  Company Number: MX-SANOFI-AVENTIS-2011SA082241

PATIENT
  Age: 85 Year
  Sex: Female
  Weight: 65 kg

DRUGS (3)
  1. PLAVIX [Suspect]
     Indication: THROMBOSIS PROPHYLAXIS
     Route: 048
     Dates: start: 20090101
  2. PLAVIX [Suspect]
     Indication: CEREBRAL DISORDER
     Route: 048
     Dates: start: 20090101
  3. OMEPRAZOLE [Concomitant]
     Indication: GASTRITIS
     Route: 048
     Dates: start: 20080101

REACTIONS (4)
  - PHARYNGITIS BACTERIAL [None]
  - DYSPHONIA [None]
  - PRODUCTIVE COUGH [None]
  - DYSPNOEA [None]
